FAERS Safety Report 9160387 (Version 2)
Quarter: 2013Q4

REPORT INFORMATION
  Report Type: Spontaneous
  Country: US (occurrence: US)
  Receive Date: 20130313
  Receipt Date: 20131121
  Transmission Date: 20140711
  Serious: Yes (Other)
  Sender: FDA-Public Use
  Company Number: US-ROCHE-1201194

PATIENT
  Sex: 0
  Weight: 81.72 kg

DRUGS (3)
  1. ACCUTANE [Suspect]
     Indication: ACNE
     Route: 048
  2. SOTRET [Suspect]
     Indication: ACNE
     Route: 048
     Dates: start: 20071120, end: 20081017
  3. AMNESTEEM [Suspect]
     Indication: ACNE
     Route: 048
     Dates: start: 20071013, end: 20080221

REACTIONS (4)
  - Colitis ulcerative [Unknown]
  - Irritable bowel syndrome [Unknown]
  - Blood cholesterol abnormal [Unknown]
  - Blood triglycerides abnormal [Unknown]
